FAERS Safety Report 4997223-X (Version None)
Quarter: 2006Q2

REPORT INFORMATION
  Report Type: 
  Country: None (occurrence: None)
  Receive Date: 20060505
  Receipt Date: 20060505
  Transmission Date: 20061013
  Serious: Yes (Other)
  Sender: FDA-Public Use
  Company Number: None

PATIENT
  Age: 65 Year
  Sex: Male
  Weight: 78.4723 kg

DRUGS (3)
  1. FLOMAX [Suspect]
     Indication: MUSCLE RELAXANT THERAPY
     Dosage: 1  DAILY  PO
     Route: 048
     Dates: start: 20060416, end: 20060501
  2. FLOMAX [Suspect]
     Indication: PROSTATIC DISORDER
     Dosage: 1  DAILY  PO
     Route: 048
     Dates: start: 20060416, end: 20060501
  3. LEVAQUIN [Suspect]
     Indication: INFECTION
     Dosage: 1  DAILY  PO
     Route: 048
     Dates: start: 20060427, end: 20060501

REACTIONS (12)
  - CONDITION AGGRAVATED [None]
  - DIZZINESS [None]
  - DYSURIA [None]
  - FALL [None]
  - FIBULA FRACTURE [None]
  - MALAISE [None]
  - MICTURITION URGENCY [None]
  - NASOPHARYNGITIS [None]
  - PROSTATE INFECTION [None]
  - PYREXIA [None]
  - SYNCOPE [None]
  - TREATMENT NONCOMPLIANCE [None]
